FAERS Safety Report 5141981-0 (Version None)
Quarter: 2006Q4

REPORT INFORMATION
  Report Type: 
  Country: None (occurrence: None)
  Receive Date: 20061102
  Receipt Date: 20061023
  Transmission Date: 20070319
  Serious: Yes (Death)
  Sender: FDA-Public Use
  Company Number: GB-ROXANE LABORATORIES, INC-2006-DE-05566GD

PATIENT

DRUGS (1)
  1. ACETAMINOPHEN AND CODEINE PHOSPHATE [Suspect]

REACTIONS (2)
  - POISONING [None]
  - THERAPEUTIC AGENT TOXICITY [None]
